FAERS Safety Report 5374670-8 (Version None)
Quarter: 2007Q2

REPORT INFORMATION
  Report Type: 
  Country: None (occurrence: None)
  Receive Date: 20070629
  Receipt Date: 20070618
  Transmission Date: 20071010
  Serious: Yes (Other)
  Sender: FDA-Public Use
  Company Number: US-JNJFOC-20070604572

PATIENT
  Sex: Female
  Weight: 72.58 kg

DRUGS (9)
  1. TOPAMAX [Suspect]
     Route: 048
  2. TOPAMAX [Suspect]
     Indication: MIGRAINE PROPHYLAXIS
     Route: 048
  3. SEROQUEL [Concomitant]
     Indication: SLEEP DISORDER
  4. MAGNESIUM SULFATE [Concomitant]
     Indication: MIGRAINE PROPHYLAXIS
     Dosage: 200 MG X4/X6
  5. DIFLUNISAL [Concomitant]
     Indication: OSTEOARTHRITIS
  6. PREMPHASE 14/14 [Concomitant]
     Indication: HORMONE REPLACEMENT THERAPY
  7. FLONASE [Concomitant]
     Indication: SEASONAL ALLERGY
     Dosage: AS NEEDED
  8. LORAZEPAM [Concomitant]
     Indication: ANXIETY
  9. IMITREX [Concomitant]
     Indication: MIGRAINE
     Route: 045

REACTIONS (5)
  - DIARRHOEA [None]
  - ELECTROENCEPHALOGRAM ABNORMAL [None]
  - FUNNEL CHEST ACQUIRED [None]
  - INSOMNIA [None]
  - WEIGHT DECREASED [None]
